FAERS Safety Report 22122226 (Version 1)
Quarter: 2023Q1

REPORT INFORMATION
  Report Type: Spontaneous
  Country: US (occurrence: None)
  Receive Date: 20230321
  Receipt Date: 20230321
  Transmission Date: 20230418
  Serious: Yes (Other)
  Sender: FDA-Public Use
  Company Number: 2023A067273

PATIENT
  Age: 17940 Day
  Sex: Male

DRUGS (36)
  1. NEXIUM [Suspect]
     Active Substance: ESOMEPRAZOLE MAGNESIUM
     Route: 048
  2. PROTONIX [Concomitant]
     Active Substance: PANTOPRAZOLE SODIUM
  3. EPINEPHRINE [Concomitant]
     Active Substance: EPINEPHRINE
  4. INDOMETHACIN [Concomitant]
     Active Substance: INDOMETHACIN
  5. ETHANOLAMINE 5% [Concomitant]
  6. HETASTARCH [Concomitant]
     Active Substance: HETASTARCH
  7. LACTATED RINGERS IV [Concomitant]
  8. SIMETHICONE (DIMETHICONE) [Concomitant]
     Active Substance: DIMETHICONE
  9. MIDAZOLAM [Concomitant]
     Active Substance: MIDAZOLAM
  10. LIDOCAINE BOLUS [Concomitant]
  11. PROPOFOL [Concomitant]
     Active Substance: PROPOFOL
  12. SODIUM CHLORIDE [Concomitant]
     Active Substance: SODIUM CHLORIDE
  13. ULTRAM [Concomitant]
     Active Substance: TRAMADOL HYDROCHLORIDE
  14. TEMAZEPAM [Concomitant]
     Active Substance: TEMAZEPAM
  15. ANDROGEL [Concomitant]
     Active Substance: TESTOSTERONE
  16. CHANTIX [Concomitant]
     Active Substance: VARENICLINE TARTRATE
  17. KENALOG-40 [Concomitant]
     Active Substance: TRIAMCINOLONE ACETONIDE
  18. FLUORIDEX [Concomitant]
  19. NICORETTE [Concomitant]
     Active Substance: NICOTINE
  20. PHENTERMINE [Concomitant]
     Active Substance: PHENTERMINE
  21. DEPO-TESTOSTERONE [Concomitant]
     Active Substance: TESTOSTERONE CYPIONATE
  22. PERIDEX [Concomitant]
     Active Substance: CHLORHEXIDINE GLUCONATE
  23. ROCURONIUM [Concomitant]
     Active Substance: ROCURONIUM BROMIDE
  24. SUCCINYLCHOLINE [Concomitant]
     Active Substance: SUCCINYLCHOLINE
  25. HYDROMORPHONE [Concomitant]
     Active Substance: HYDROMORPHONE
  26. NEOSTIGMINE [Concomitant]
     Active Substance: NEOSTIGMINE
  27. ONDANSETRON [Concomitant]
     Active Substance: ONDANSETRON
  28. CEFOTAN [Concomitant]
     Active Substance: CEFOTETAN DISODIUM
  29. SUBLIMAZE [Concomitant]
     Active Substance: FENTANYL CITRATE
  30. BUPIVACAINE [Concomitant]
     Active Substance: BUPIVACAINE
  31. NARCAN [Concomitant]
     Active Substance: NALOXONE HYDROCHLORIDE
  32. ATIVAN [Concomitant]
     Active Substance: LORAZEPAM
  33. NICOTINE [Concomitant]
     Active Substance: NICOTINE
  34. TEESTOSTERONE [Concomitant]
  35. MOBIC [Concomitant]
     Active Substance: MELOXICAM
  36. PHENTERMINE [Concomitant]
     Active Substance: PHENTERMINE

REACTIONS (3)
  - Neuroendocrine tumour [Unknown]
  - Acute kidney injury [Unknown]
  - Gastric cancer [Unknown]

NARRATIVE: CASE EVENT DATE: 20210528
